FAERS Safety Report 7638293-X (Version None)
Quarter: 2011Q3

REPORT INFORMATION
  Report Type: 
  Country: None (occurrence: None)
  Receive Date: 20110727
  Receipt Date: 20110727
  Transmission Date: 20111222
  Serious: Yes (Life-Threatening, Hospitalization, Other)
  Sender: FDA-Public Use
  Company Number: None

PATIENT
  Age: 59 Year
  Sex: Male
  Weight: 83.914 kg

DRUGS (2)
  1. TOPIRAMATE [Concomitant]
     Dosage: 50 MG
  2. TOPIRAMATE [Suspect]
     Indication: HEADACHE
     Dosage: 25MG
     Route: 048
     Dates: start: 20110629, end: 20110711

REACTIONS (26)
  - FATIGUE [None]
  - DIPLOPIA [None]
  - DISTURBANCE IN ATTENTION [None]
  - HEADACHE [None]
  - DIZZINESS [None]
  - CONFUSIONAL STATE [None]
  - FLUID RETENTION [None]
  - URINARY RETENTION [None]
  - BLOOD BLISTER [None]
  - VASCULAR OCCLUSION [None]
  - CONDITION AGGRAVATED [None]
  - INSOMNIA [None]
  - HYPOHIDROSIS [None]
  - LACRIMATION DECREASED [None]
  - ARTHRALGIA [None]
  - HYPOPNOEA [None]
  - DISORIENTATION [None]
  - EYELID PTOSIS [None]
  - CHEST DISCOMFORT [None]
  - BONE PAIN [None]
  - RASH [None]
  - CARDIAC DISORDER [None]
  - DYSPNOEA [None]
  - SKIN EXFOLIATION [None]
  - DYSURIA [None]
  - AMNESIA [None]
